FAERS Safety Report 8741674 (Version 9)
Quarter: 2014Q2

REPORT INFORMATION
  Report Type: Report from Study
  Country: US (occurrence: US)
  Receive Date: 20120824
  Receipt Date: 20140423
  Transmission Date: 20141212
  Serious: Yes (Hospitalization, Other)
  Sender: FDA-Public Use
  Company Number: US-BIOGENIDEC-2012BI031771

PATIENT
  Age: 33 Year
  Sex: Female
  Weight: 69 kg

DRUGS (7)
  1. TYSABRI [Suspect]
     Indication: CROHN^S DISEASE
     Route: 042
     Dates: start: 20080909, end: 20120726
  2. TYSABRI [Suspect]
     Indication: CROHN^S DISEASE
     Route: 042
     Dates: start: 2013
  3. TYLENOL [Concomitant]
     Indication: HEADACHE
     Route: 048
     Dates: start: 2005
  4. ORTHO EVRA [Concomitant]
     Indication: CONTRACEPTION
     Route: 062
     Dates: start: 20051123
  5. ORTHO EVRA [Concomitant]
     Indication: CONTRACEPTION
     Route: 062
     Dates: start: 20051123
  6. GLUTAMINE [Concomitant]
     Route: 048
  7. ZANTAC [Concomitant]
     Route: 048

REACTIONS (1)
  - Invasive ductal breast carcinoma [Recovered/Resolved]
